FAERS Safety Report 7373928-0 (Version None)
Quarter: 2011Q1

REPORT INFORMATION
  Report Type: 
  Country: None (occurrence: None)
  Receive Date: 20110325
  Receipt Date: 20110322
  Transmission Date: 20110831
  Serious: No
  Sender: FDA-Public Use
  Company Number: US-PFIZER INC-2011063605

PATIENT
  Sex: Female
  Weight: 66.213 kg

DRUGS (2)
  1. GEODON [Suspect]
     Indication: BIPOLAR DISORDER
     Dosage: 80 MG, DAILY
     Route: 048
     Dates: start: 20110201
  2. LITHIUM [Concomitant]
     Dosage: 300 MG, 3X/DAY

REACTIONS (1)
  - INSOMNIA [None]
